FAERS Safety Report 5283446-1 (Version None)
Quarter: 2007Q2

REPORT INFORMATION
  Report Type: 
  Country: None (occurrence: None)
  Receive Date: 20070402
  Receipt Date: 20070319
  Transmission Date: 20071010
  Serious: Yes (Life-Threatening, Hospitalization)
  Sender: FDA-Public Use
  Company Number: IT-JNJFOC-20070304514

PATIENT
  Sex: Male

DRUGS (6)
  1. INFLIXIMAB [Suspect]
     Dosage: 300 MG/KG EVERY 6-8 WEEKS
  2. INFLIXIMAB [Suspect]
     Indication: PSORIATIC ARTHROPATHY
     Dosage: 300 MG EVERY 6-8 WEEKS
  3. METHOTREXATE [Suspect]
     Indication: PSORIATIC ARTHROPATHY
  4. FOLIC ACID [Concomitant]
     Route: 048
  5. ZANEDIP [Concomitant]
     Indication: HYPERTENSION
     Route: 048
  6. BLOPRESID [Concomitant]
     Indication: HYPERTENSION
     Route: 048

REACTIONS (3)
  - ACUTE MYOCARDIAL INFARCTION [None]
  - CARDIOGENIC SHOCK [None]
  - CORONARY ARTERY DISEASE [None]
